FAERS Safety Report 19254511 (Version 1)
Quarter: 2021Q2

REPORT INFORMATION
  Report Type: Spontaneous
  Country: US (occurrence: US)
  Receive Date: 20210513
  Receipt Date: 20210513
  Transmission Date: 20210717
  Serious: Yes (Hospitalization)
  Sender: FDA-Public Use
  Company Number: US-MYLANLABS-2021M1027675

PATIENT
  Age: 81 Year
  Sex: Male

DRUGS (4)
  1. GABAPENTIN. [Suspect]
     Active Substance: GABAPENTIN
     Indication: BEHAVIOUR DISORDER
     Route: 065
  2. DIAZEPAM. [Suspect]
     Active Substance: DIAZEPAM
     Dosage: UNK, REDUCED DOSE
     Route: 065
  3. DIAZEPAM. [Suspect]
     Active Substance: DIAZEPAM
     Indication: BEHAVIOUR DISORDER
     Dosage: UNK
     Route: 065
  4. HALOPERIDOL. [Suspect]
     Active Substance: HALOPERIDOL
     Indication: BEHAVIOUR DISORDER
     Route: 065

REACTIONS (4)
  - Delirium [Recovering/Resolving]
  - Condition aggravated [Recovering/Resolving]
  - Withdrawal syndrome [Recovering/Resolving]
  - Off label use [Unknown]
